FAERS Safety Report 5214937-7 (Version None)
Quarter: 2007Q1

REPORT INFORMATION
  Report Type: 
  Country: None (occurrence: None)
  Receive Date: 20061108
  Receipt Date: 20051128
  Transmission Date: 20070707
  Serious: Yes (Other)
  Sender: FDA-Public Use
  Company Number: PHEH2005US12930

PATIENT
  Age: 68 Year
  Sex: Female

DRUGS (1)
  1. ESTRADERM [Suspect]
     Indication: ECZEMA
     Dosage: SEE IMAGE, TRANSDERMAL
     Route: 062

REACTIONS (2)
  - HYSTERECTOMY [None]
  - UTERINE CANCER [None]
